FAERS Safety Report 9714148 (Version 2)
Quarter: 2013Q4

REPORT INFORMATION
  Report Type: Spontaneous
  Country: US (occurrence: US)
  Receive Date: 20131126
  Receipt Date: 20131126
  Transmission Date: 20140711
  Serious: No
  Sender: FDA-Public Use
  Company Number: US-GILEAD-2008-0018304

PATIENT
  Sex: Female
  Weight: 92.99 kg

DRUGS (8)
  1. LETAIRIS [Suspect]
     Route: 048
     Dates: start: 20080423
  2. HYDROCHLOROTHIAZIDE [Concomitant]
  3. LISINOPRIL [Concomitant]
  4. PROAIR HFA [Concomitant]
  5. LOVASTATIN [Concomitant]
  6. ETODOLAC [Concomitant]
  7. HYDROXYZINE [Concomitant]
  8. PROPOXYPHENE [Concomitant]

REACTIONS (1)
  - Local swelling [None]
